FAERS Safety Report 7547194-7 (Version None)
Quarter: 2011Q2

REPORT INFORMATION
  Report Type: 
  Country: None (occurrence: None)
  Receive Date: 20110614
  Receipt Date: 20110531
  Transmission Date: 20111010
  Serious: Yes (Other)
  Sender: FDA-Public Use
  Company Number: DE-UCBSA-034384

PATIENT
  Sex: Female
  Weight: 102.4 kg

DRUGS (22)
  1. LEVOTHYROXINE SODIUM [Concomitant]
  2. ALENDRON [Concomitant]
  3. ALBUTEROL [Concomitant]
     Dosage: 2 PUFFS IF REQUIRED
  4. ZOP [Concomitant]
     Dosage: 0-0-0-1
  5. FOLIC ACID [Concomitant]
     Dosage: 0-1-1
  6. NITROLINGUAL [Concomitant]
     Dosage: 2 PUFFS IF REQUIRED
  7. DOXY M [Concomitant]
  8. PASPERTIN DROPS [Concomitant]
     Dosage: 20 IF REQUIRED
  9. DIOVAN HCT [Concomitant]
     Dosage: 160/12.5 UG
  10. METHOTREXATE [Concomitant]
     Route: 058
  11. CORTICOSTEROID [Concomitant]
  12. ACYCLOVIR OINTMENT [Concomitant]
  13. CALCIUM CARBONATE [Concomitant]
  14. CARVEDILOL [Concomitant]
  15. VIANI DISC [Concomitant]
     Dosage: 50/25 UG ,1-0-1 PUFFS
  16. THIAZIDES [Concomitant]
  17. CIMZIA [Suspect]
     Indication: RHEUMATOID ARTHRITIS
     Route: 058
     Dates: start: 20110222
  18. SYMBICORT TH [Concomitant]
     Dosage: 2 PUFFS IN A DAY
  19. CALCIUM/VITAMIN D3 [Concomitant]
  20. PREDNISOLONE [Concomitant]
  21. AMITRIPTYLINE HCL [Concomitant]
  22. DIPYRONE TAB [Concomitant]
     Dosage: 25-25-25

REACTIONS (1)
  - PSORIASIS [None]
